FAERS Safety Report 10783470 (Version 1)
Quarter: 2015Q1

REPORT INFORMATION
  Report Type: Spontaneous
  Country: US (occurrence: US)
  Receive Date: 20150210
  Receipt Date: 20150210
  Transmission Date: 20150721
  Serious: Yes (Other)
  Sender: FDA-Public Use
  Company Number: US-UNITED THERAPEUTICS-UNT-2015-000817

PATIENT
  Sex: Female

DRUGS (3)
  1. ORENITRAM [Suspect]
     Active Substance: TREPROSTINIL
     Dosage: 1.75 MG, BID
     Route: 048
     Dates: start: 20140605
  2. ORENITRAM [Suspect]
     Active Substance: TREPROSTINIL
     Indication: PRODUCT USED FOR UNKNOWN INDICATION
     Dosage: 2 MG, BID
     Route: 048
     Dates: start: 20141206, end: 20141227
  3. ORENITRAM [Suspect]
     Active Substance: TREPROSTINIL
     Dosage: 1.75 MG, BID
     Route: 048
     Dates: start: 20141228

REACTIONS (5)
  - Dyspepsia [Not Recovered/Not Resolved]
  - Headache [Recovering/Resolving]
  - Loss of consciousness [Unknown]
  - Syncope [Unknown]
  - Diarrhoea [Not Recovered/Not Resolved]

NARRATIVE: CASE EVENT DATE: 20141206
